FAERS Safety Report 13774097 (Version 1)
Quarter: 2017Q3

REPORT INFORMATION
  Report Type: Spontaneous
  Country: US (occurrence: US)
  Receive Date: 20170721
  Receipt Date: 20170721
  Transmission Date: 20171127
  Serious: No
  Sender: FDA-Public Use
  Company Number: US-BAYER-2017-139260

PATIENT
  Age: 4 Year
  Sex: Female
  Weight: 18.14 kg

DRUGS (1)
  1. CLARITIN [Suspect]
     Active Substance: LORATADINE
     Indication: FOOD ALLERGY

REACTIONS (1)
  - Product use in unapproved indication [Unknown]
